FAERS Safety Report 8143571-4 (Version None)
Quarter: 2012Q1

REPORT INFORMATION
  Report Type: 
  Country: None (occurrence: None)
  Receive Date: 20120217
  Receipt Date: 20111027
  Transmission Date: 20120608
  Serious: No
  Sender: FDA-Public Use
  Company Number: US-GLAXOSMITHKLINE-A0951384A

PATIENT
  Age: 63 Year
  Sex: Male
  Weight: 134.5 kg

DRUGS (22)
  1. VOTRIENT [Suspect]
     Indication: PRODUCT USED FOR UNKNOWN INDICATION
     Dosage: 800MG PER DAY
     Route: 065
     Dates: start: 20101129, end: 20111003
  2. DIPHENOXYLATE HCL + ATROPINE SULFATE [Concomitant]
     Dates: start: 20111005
  3. ASPIRIN [Concomitant]
     Dosage: 162MG PER DAY
  4. CARVEDILOL [Concomitant]
     Dosage: 6.25MG TWICE PER DAY
     Dates: start: 20071116
  5. JANUVIA [Concomitant]
     Dosage: 100MG PER DAY
     Dates: start: 20071116
  6. VITAMIN D [Concomitant]
     Dosage: 2500IU PER DAY
  7. DESONIDE CREAM [Concomitant]
     Dates: start: 20110103
  8. MYCOSTATIN [Concomitant]
     Dates: start: 20101227
  9. CLINDAMYCIN PALMITATE HYDROCHLORIDE [Concomitant]
     Route: 048
  10. SILVADENE [Concomitant]
  11. LISINOPRIL [Concomitant]
     Dosage: 20MG TWICE PER DAY
  12. OXYCODONE HCL [Concomitant]
  13. NYSTATIN [Concomitant]
     Dates: start: 20100420
  14. HUMULIN R [Concomitant]
     Dates: start: 20071116
  15. FENTANYL [Concomitant]
  16. HUMULIN N [Concomitant]
     Dosage: 40UNIT TWICE PER DAY
     Dates: start: 20071116
  17. ALBUTEROL [Concomitant]
  18. ISOSORBIDE MONONITRATE [Concomitant]
     Dosage: 60MG PER DAY
  19. TRAMADOL HCL [Concomitant]
     Dosage: 100MG PER DAY
     Dates: start: 20071116
  20. LIDOCAINE [Concomitant]
     Dates: start: 20110531
  21. HYDROCODONE BITARTRATE AND ACETAMINOPHEN [Concomitant]
  22. OXYCONTIN [Concomitant]

REACTIONS (1)
  - DISEASE PROGRESSION [None]
